FAERS Safety Report 7303503-5 (Version None)
Quarter: 2011Q1

REPORT INFORMATION
  Report Type: 
  Country: None (occurrence: None)
  Receive Date: 20110221
  Receipt Date: 20110211
  Transmission Date: 20110831
  Serious: Yes (Hospitalization)
  Sender: FDA-Public Use
  Company Number: PHHY2010BR52410

PATIENT
  Sex: Female
  Weight: 52 kg

DRUGS (4)
  1. LOSARTAN [Concomitant]
     Indication: HYPERTENSION
     Dosage: TWICE DAILY
     Route: 048
     Dates: start: 20080101
  2. ACLASTA [Suspect]
     Indication: OSTEOPOROSIS
     Dosage: 5MG/100ML ANNUAL APPLICATION
     Route: 042
     Dates: start: 20100610
  3. CALCIO [Concomitant]
     Indication: OSTEOPOROSIS
     Dosage: TWICE DAILY
     Route: 048
     Dates: start: 20100601
  4. CONCOR [Concomitant]
     Indication: HYPERTENSION
     Dosage: ONCE DAILY
     Route: 048
     Dates: start: 20090101

REACTIONS (3)
  - BLOOD CREATININE ABNORMAL [None]
  - LUMBAR VERTEBRAL FRACTURE [None]
  - RENAL DISORDER [None]
